FAERS Safety Report 5710305-X (Version None)
Quarter: 2008Q2

REPORT INFORMATION
  Report Type: 
  Country: None (occurrence: None)
  Receive Date: 20080418
  Receipt Date: 20080409
  Transmission Date: 20081010
  Serious: Yes (Hospitalization, Other)
  Sender: FDA-Public Use
  Company Number: GB-PFIZER INC-2008029868

PATIENT
  Age: 71 Year
  Sex: Male
  Weight: 74 kg

DRUGS (12)
  1. HYDROCORTISONE SODIUM SUCCINATE [Suspect]
     Indication: PROPHYLAXIS
     Route: 042
  2. CHLORPHENIRAMINE MALEATE [Suspect]
     Indication: PROPHYLAXIS
     Route: 042
  3. RITUXIMAB [Suspect]
     Indication: MANTLE CELL LYMPHOMA
     Route: 042
  4. ACYCLOVIR [Concomitant]
     Route: 048
  5. ALLOPURINOL [Concomitant]
  6. CHLORHEXIDINE GLUCONATE [Concomitant]
  7. CYCLOPHOSPHAMIDE [Concomitant]
  8. FLUCONAZOLE [Concomitant]
     Route: 048
  9. FLUDARABINE PHOSPHATE [Concomitant]
  10. MITOXANTRONE [Concomitant]
  11. RABEPRAZOLE SODIUM [Concomitant]
     Route: 048
  12. SIMVASTATIN [Concomitant]
     Route: 048

REACTIONS (3)
  - BODY TEMPERATURE INCREASED [None]
  - CHILLS [None]
  - PLATELET COUNT DECREASED [None]
